FAERS Safety Report 13047642 (Version 2)
Quarter: 2016Q4

REPORT INFORMATION
  Report Type: Spontaneous
  Country: FR (occurrence: FR)
  Receive Date: 20161220
  Receipt Date: 20161227
  Transmission Date: 20170207
  Serious: Yes (Congenital Anomaly, Other)
  Sender: FDA-Public Use
  Company Number: FR-ABBVIE-16P-056-1815492-00

PATIENT
  Sex: Male

DRUGS (2)
  1. DEPAKINE CHRONO [Suspect]
     Active Substance: VALPROATE SODIUM
     Indication: MATERNAL EXPOSURE TIMING UNSPECIFIED
     Route: 064
  2. DEPAKINE CHRONO [Suspect]
     Active Substance: VALPROATE SODIUM
     Route: 063

REACTIONS (20)
  - Dysmorphism [Unknown]
  - Learning disability [Unknown]
  - Developmental coordination disorder [Unknown]
  - Foetal exposure during pregnancy [Unknown]
  - Growth retardation [Unknown]
  - Brachydactyly [Unknown]
  - Foot deformity [Unknown]
  - Visual impairment [Unknown]
  - Foetal growth restriction [Unknown]
  - Cryptorchism [Unknown]
  - Hypermobility syndrome [Unknown]
  - Learning disorder [Unknown]
  - Scoliosis [Unknown]
  - Foetal anticonvulsant syndrome [Unknown]
  - Exposure during breast feeding [Unknown]
  - Astigmatism [Unknown]
  - Motor developmental delay [Unknown]
  - Memory impairment [Unknown]
  - Corrective lens user [Unknown]
  - Peroneal nerve palsy [Unknown]

NARRATIVE: CASE EVENT DATE: 19971221
